FAERS Safety Report 19875017 (Version 1)
Quarter: 2021Q3

REPORT INFORMATION
  Report Type: Spontaneous
  Country: US (occurrence: US)
  Receive Date: 20210923
  Receipt Date: 20210923
  Transmission Date: 20211014
  Serious: Yes (Other)
  Sender: FDA-Public Use
  Company Number: US-PFIZER INC-202101090555

PATIENT
  Age: 42 Year
  Sex: Male

DRUGS (1)
  1. XELJANZ XR [Suspect]
     Active Substance: TOFACITINIB CITRATE
     Dosage: 11 MG
     Dates: start: 202108

REACTIONS (6)
  - Cough [Unknown]
  - Abdominal pain upper [Unknown]
  - Joint swelling [Unknown]
  - Constipation [Unknown]
  - Arthropathy [Unknown]
  - Vomiting [Unknown]

NARRATIVE: CASE EVENT DATE: 202108
